FAERS Safety Report 5611313-X (Version None)
Quarter: 2008Q1

REPORT INFORMATION
  Report Type: 
  Country: None (occurrence: None)
  Receive Date: 20080201
  Receipt Date: 20080118
  Transmission Date: 20080703
  Serious: Yes (Hospitalization)
  Sender: FDA-Public Use
  Company Number: US-ROCHE-466869

PATIENT
  Age: 52 Year
  Sex: Female
  Weight: 58 kg

DRUGS (30)
  1. RIBAVIRIN [Suspect]
     Indication: HEPATITIS C
     Route: 048
     Dates: start: 20060815, end: 20060904
  2. PEG-INTERFERON A-2A (RO 25-8310) [Suspect]
     Indication: HEPATITIS C
     Dosage: 25.7143 MCG WAS REPORTED AS THE PATIENT'S ARITHMETICAL DAILY DOSE.
     Route: 058
     Dates: start: 20060815, end: 20060831
  3. BLINDED VX-950 [Suspect]
     Indication: HEPATITIS C
     Route: 048
     Dates: start: 20060815, end: 20060905
  4. ASCORBIC ACID [Concomitant]
     Route: 048
     Dates: start: 19720101
  5. MAGNESIUM OXIDE [Concomitant]
     Route: 048
     Dates: start: 19880101
  6. VITAMIN E [Concomitant]
     Dosage: GENERIC NAME REPORTED AS TOCOPHEROL. DAILY.
     Route: 048
     Dates: start: 19950101
  7. MULTI-VITAMIN [Concomitant]
     Dosage: DAILY.
  8. IRON [Concomitant]
     Dosage: DAILY.
     Route: 048
     Dates: start: 19860101
  9. CALCIUM GLUCONATE [Concomitant]
     Route: 048
     Dates: start: 19990101
  10. ALBUTEROL [Concomitant]
     Indication: ASTHMA
     Route: 055
     Dates: start: 20010101
  11. NASACON [Concomitant]
     Route: 045
     Dates: start: 20010101
  12. ASTELIN [Concomitant]
     Route: 045
     Dates: start: 20010101
  13. INTAL [Concomitant]
     Indication: ASTHMA
     Route: 055
     Dates: start: 20010101
  14. AZMACORT [Concomitant]
     Indication: ASTHMA
     Route: 055
     Dates: start: 20010101
  15. FISH OIL [Concomitant]
     Route: 048
     Dates: start: 20050101
  16. TALACEN [Concomitant]
     Indication: BACK PAIN
     Dosage: DOSE FREQUENCY: EVERY 6 HOURS PRN. GENERIC NAME REPORTED AS FORTAGESIC.
     Route: 048
     Dates: start: 19950101
  17. ROBAXIN [Concomitant]
     Indication: BACK PAIN
     Route: 048
     Dates: start: 19710101
  18. MOTRIN [Concomitant]
     Indication: BACK PAIN
     Route: 048
     Dates: start: 19840101, end: 20060903
  19. ASPIRIN [Concomitant]
     Route: 048
     Dates: start: 19960101
  20. SINGULAIR [Concomitant]
     Route: 048
     Dates: start: 20050101
  21. XANAX [Concomitant]
     Indication: POST-TRAUMATIC STRESS DISORDER
     Route: 048
     Dates: start: 20040101
  22. PREMARIN [Concomitant]
     Indication: MENOPAUSE
     Route: 048
     Dates: start: 20010101
  23. PROVERA [Concomitant]
     Indication: MENOPAUSE
     Route: 048
     Dates: start: 20010101
  24. PROZAC [Concomitant]
     Indication: DEPRESSION
     Dosage: GENERIC NAME REPORTED AS FLUXOTENINE HYDROCHLORIDE.
     Route: 048
     Dates: start: 20020101
  25. AMBIEN [Concomitant]
     Indication: INSOMNIA
     Route: 048
     Dates: start: 20020101
  26. KYO-DOPHILUS [Concomitant]
     Route: 048
     Dates: start: 19820101
  27. NYSTATIN [Concomitant]
     Dates: start: 19710101
  28. TERCONAZOLE [Concomitant]
     Dates: start: 19710101
  29. CETIRIZINE HCL [Concomitant]
     Route: 058
  30. ANAMANTLE HC [Concomitant]
     Dates: start: 20060822

REACTIONS (3)
  - ANAEMIA [None]
  - DEHYDRATION [None]
  - DIZZINESS [None]
